FAERS Safety Report 20028222 (Version 7)
Quarter: 2022Q1

REPORT INFORMATION
  Report Type: Report from Study
  Country: MX (occurrence: MX)
  Receive Date: 20211103
  Receipt Date: 20220129
  Transmission Date: 20220423
  Serious: Yes (Death, Life-Threatening, Hospitalization, Other)
  Sender: FDA-Public Use
  Company Number: MX-NOVARTISPH-NVSC2021MX248878

PATIENT
  Age: 81 Year
  Sex: Female
  Weight: 63 kg

DRUGS (5)
  1. ENTRESTO [Suspect]
     Active Substance: SACUBITRIL\VALSARTAN
     Indication: Ischaemic heart disease prophylaxis
     Dosage: 100 MG, BID
     Route: 048
     Dates: start: 202108
  2. ENTRESTO [Suspect]
     Active Substance: SACUBITRIL\VALSARTAN
     Indication: Blood pressure abnormal
     Dosage: 1 DOSAGE FORM, Q12H (EVERY 12 HOURS)
     Route: 048
     Dates: start: 202109
  3. ENTRESTO [Suspect]
     Active Substance: SACUBITRIL\VALSARTAN
     Dosage: 100 MG, Q2H
     Route: 048
     Dates: end: 20211213
  4. FORTEO [Concomitant]
     Active Substance: TERIPARATIDE
     Indication: Osteoporosis
     Dosage: 250 MCC/ML
     Route: 065
  5. FORTEO [Concomitant]
     Active Substance: TERIPARATIDE
     Dosage: 15 IU, QD
     Route: 048
     Dates: start: 202010

REACTIONS (35)
  - COVID-19 [Fatal]
  - Feeling abnormal [Recovered/Resolved]
  - Haematochezia [Recovering/Resolving]
  - Gastric haemorrhage [Recovering/Resolving]
  - Renal failure [Unknown]
  - Abdominal pain upper [Recovered/Resolved]
  - Fatigue [Not Recovered/Not Resolved]
  - Haemoglobin decreased [Recovering/Resolving]
  - General physical health deterioration [Unknown]
  - Dysstasia [Not Recovered/Not Resolved]
  - Gastric ulcer [Not Recovered/Not Resolved]
  - Dysphagia [Not Recovered/Not Resolved]
  - Delirium [Recovered/Resolved]
  - Melaena [Unknown]
  - Phlebitis [Unknown]
  - Malaise [Recovered/Resolved]
  - Blood sodium decreased [Recovered/Resolved]
  - Allodynia [Recovered/Resolved]
  - Eating disorder [Not Recovered/Not Resolved]
  - Constipation [Recovered/Resolved]
  - Polyp [Not Recovered/Not Resolved]
  - Diarrhoea [Recovering/Resolving]
  - Incoherent [Unknown]
  - Abdominal discomfort [Unknown]
  - Blood pressure decreased [Not Recovered/Not Resolved]
  - Urinary tract infection [Recovered/Resolved]
  - Dyspnoea [Not Recovered/Not Resolved]
  - Pyrexia [Recovered/Resolved]
  - Haemorrhoids [Recovered/Resolved]
  - Oral herpes [Recovered/Resolved]
  - Dermatitis [Not Recovered/Not Resolved]
  - Cough [Not Recovered/Not Resolved]
  - Dehydration [Recovered/Resolved]
  - Off label use [Recovered/Resolved]
  - Product use in unapproved indication [Recovered/Resolved]

NARRATIVE: CASE EVENT DATE: 20210801
